FAERS Safety Report 9696167 (Version 1)
Quarter: 2013Q4

REPORT INFORMATION
  Report Type: Spontaneous
  Country: NZ (occurrence: None)
  Receive Date: 20131115
  Receipt Date: 20131115
  Transmission Date: 20140711
  Serious: Yes (Hospitalization)
  Sender: FDA-Public Use
  Company Number: ACET20130030

PATIENT
  Age: 52 Year
  Sex: Female
  Weight: 61 kg

DRUGS (8)
  1. Q-PAP [Suspect]
     Indication: NECK PAIN
     Route: 048
  2. ALCOHOL [Suspect]
     Indication: ALCOHOLISM
  3. DIAZEPAM (DIAZEPAM) (UNKNOWN) (DIAZEPAM) [Concomitant]
  4. OMEPRAZOLE (OMEPRAZOLE) (UNKNOWN) (OMEPRAZOLE) [Concomitant]
  5. CITALOPRAM (CITALOPRAM) (20 MILLIGRAM, TABLETS) (CITALOPRAM) [Concomitant]
  6. SYMBICORT (FORMOTEROL FUMARATE, BUDESONIDE) (SOLUTION) (FORMOTEROL FUMARATE, BUDESONIDE) [Concomitant]
  7. ZOPICLONE (ZOPICLONE) (UNKNOWN) (ZOPICLONE) [Concomitant]
  8. MULTIVITAMINS (ERGOCALCIFEROL, ASCORBIC ACID, FOLIC ACID, THIAMINE HYDROCHLORIDE, RETINOL, RIBOFLAVIN, NICOTINAMIDE, PANTHENOL) (UNKNOWN) (ERGOCALCIFEROL, ASCORBIC ACID, FOLIC ACID, THIAMINE HYDROCHLORIDE, RETINOL, RIBOFLAVIN, NICOTINAMIDE, PANTHENOL) [Concomitant]

REACTIONS (4)
  - Liver injury [None]
  - Tachycardia [None]
  - Tremor [None]
  - Alcoholism [None]
